FAERS Safety Report 6444758-9 (Version None)
Quarter: 2009Q4

REPORT INFORMATION
  Report Type: 
  Country: None (occurrence: None)
  Receive Date: 20091118
  Receipt Date: 20091112
  Transmission Date: 20100525
  Serious: No
  Sender: FDA-Public Use
  Company Number: B0594205A

PATIENT
  Sex: Female

DRUGS (6)
  1. REQUIP [Suspect]
     Indication: GAIT DISTURBANCE
     Dosage: .25MG THREE TIMES PER DAY
     Dates: start: 20090911, end: 20090912
  2. SELOKEN [Concomitant]
     Indication: HYPERTENSION
     Dosage: 20MG PER DAY
     Route: 048
     Dates: start: 20050401
  3. ALDACTONE [Concomitant]
     Indication: HYPERTENSION
     Dosage: 25MG PER DAY
     Route: 048
     Dates: start: 20050401
  4. ASPARA K [Concomitant]
     Indication: DRUG USE FOR UNKNOWN INDICATION
     Dosage: 2400MG PER DAY
     Route: 065
     Dates: start: 20050401
  5. NEUROVITAN [Concomitant]
     Indication: DRUG USE FOR UNKNOWN INDICATION
     Route: 048
     Dates: start: 20050401
  6. MEXITIL [Concomitant]
     Indication: ARRHYTHMIA
     Dosage: 450MG PER DAY
     Route: 048
     Dates: start: 20050401

REACTIONS (2)
  - DIZZINESS POSTURAL [None]
  - SOMNOLENCE [None]
